FAERS Safety Report 6590677-7 (Version None)
Quarter: 2010Q1

REPORT INFORMATION
  Report Type: 
  Country: None (occurrence: None)
  Receive Date: 20100219
  Receipt Date: 20100215
  Transmission Date: 20100710
  Serious: Yes (Other)
  Sender: FDA-Public Use
  Company Number: B0632846A

PATIENT
  Sex: Female

DRUGS (3)
  1. ARIXTRA [Suspect]
     Indication: VENOUS THROMBOSIS
     Dosage: 7.5MG PER DAY
     Route: 058
     Dates: start: 20090808, end: 20090818
  2. BIPROFENID [Concomitant]
     Indication: PROCEDURAL PAIN
     Route: 048
  3. IOMEPROL [Concomitant]
     Indication: ANGIOGRAM
     Route: 042
     Dates: start: 20090814, end: 20090814

REACTIONS (10)
  - CYTOLYTIC HEPATITIS [None]
  - DEHYDRATION [None]
  - DIARRHOEA [None]
  - HEPATITIS CHOLESTATIC [None]
  - OVERDOSE [None]
  - PROCEDURAL PAIN [None]
  - PULMONARY EMBOLISM [None]
  - RECTAL HAEMORRHAGE [None]
  - RENAL FAILURE ACUTE [None]
  - RENAL TUBULAR NECROSIS [None]
